FAERS Safety Report 4474234-4 (Version None)
Quarter: 2004Q4

REPORT INFORMATION
  Report Type: 
  Country: None (occurrence: None)
  Receive Date: 20041008
  Receipt Date: 20040921
  Transmission Date: 20050328
  Serious: Yes (Hospitalization, Other)
  Sender: FDA-Public Use
  Company Number: USA040978814

PATIENT
  Age: 100 Year
  Sex: Female
  Weight: 52 kg

DRUGS (12)
  1. FORTEO [Suspect]
     Indication: OSTEOPOROSIS
     Dosage: 20 UG/1 DAY
     Dates: start: 20030901
  2. MICRO K EXTENCAPS (POTASSIUM CHLORIDE) [Concomitant]
  3. ALLOPURINOL [Concomitant]
  4. ASPIRIN [Concomitant]
  5. CALCIUM [Concomitant]
  6. SYNTHROID [Concomitant]
  7. LASIX [Concomitant]
  8. DIGITEX (DIGOXIN) [Concomitant]
  9. NYSTATIN [Concomitant]
  10. GUAIFENESIN (GUAIFENESIN) [Concomitant]
  11. MULTI-VITAMIN [Concomitant]
  12. NEURONTIN [Concomitant]

REACTIONS (4)
  - FALL [None]
  - INJECTION SITE PAIN [None]
  - RIB FRACTURE [None]
  - WRIST FRACTURE [None]
